FAERS Safety Report 10006205 (Version 1)
Quarter: 2014Q1

REPORT INFORMATION
  Report Type: Spontaneous
  Country: FR (occurrence: FR)
  Receive Date: 20140313
  Receipt Date: 20140313
  Transmission Date: 20141002
  Serious: Yes (Hospitalization)
  Sender: FDA-Public Use
  Company Number: FR-PFIZER INC-2014072196

PATIENT
  Age: 52 Year
  Sex: Female

DRUGS (7)
  1. CORDARONE [Suspect]
     Indication: ATRIAL FIBRILLATION
     Dosage: UNK
     Route: 048
     Dates: start: 20131030, end: 20131105
  2. XARELTO [Suspect]
     Dosage: UNK
     Route: 048
     Dates: start: 20131102, end: 20131109
  3. STAGID [Concomitant]
     Dosage: UNK
  4. WYSTAMM [Concomitant]
     Dosage: UNK
  5. IRBESARTAN [Concomitant]
  6. MONTELUKAST [Concomitant]
     Dosage: UNK
  7. ALPRAZOLAM [Concomitant]
     Dosage: UNK

REACTIONS (1)
  - Arthralgia [Recovered/Resolved]
